FAERS Safety Report 4546642-4 (Version None)
Quarter: 2005Q1

REPORT INFORMATION
  Report Type: 
  Country: None (occurrence: None)
  Receive Date: 20050103
  Receipt Date: 20041210
  Transmission Date: 20050727
  Serious: Yes (Hospitalization)
  Sender: FDA-Public Use
  Company Number: EWC020531152

PATIENT
  Age: 62 Year
  Sex: Male
  Weight: 81 kg

DRUGS (13)
  1. PEMETREXED (LY231514) [Suspect]
     Indication: MALIGNANT URINARY TRACT NEOPLASM
     Dosage: 1000 MG
     Dates: start: 20020520, end: 20020710
  2. GEMCITABINE HYDROCHLORIDE-IV (GEMCITABINE) [Suspect]
     Indication: MALIGNANT URINARY TRACT NEOPLASM
     Dosage: 2444 MG
     Dates: start: 20020520, end: 20020710
  3. PANACOD [Concomitant]
  4. ACETAMINOPHEN [Concomitant]
  5. GRANISETRON [Concomitant]
  6. DEXAMETHASONE [Concomitant]
  7. FOLATE SODIUM [Concomitant]
  8. TRIMETHOPRIM [Concomitant]
  9. TRIMOPAN (TRIMETHOPRIM) [Concomitant]
  10. KYTRIL - FOR INFUSION (GRANISETRON HYDROCHLORIDE) [Concomitant]
  11. DEXAMETHASONE [Concomitant]
  12. FOLVITE (FOLIC ACID) [Concomitant]
  13. ACETAMINOPHEN [Concomitant]

REACTIONS (9)
  - BLOOD CREATININE INCREASED [None]
  - DISEASE PROGRESSION [None]
  - HEADACHE [None]
  - INFECTION [None]
  - METASTASES TO CENTRAL NERVOUS SYSTEM [None]
  - NEUROLOGICAL SYMPTOM [None]
  - NEUTROPHIL COUNT DECREASED [None]
  - VOMITING [None]
  - WHITE BLOOD CELL COUNT DECREASED [None]
